FAERS Safety Report 13267759 (Version 1)
Quarter: 2017Q1

REPORT INFORMATION
  Report Type: Spontaneous
  Country: US (occurrence: US)
  Receive Date: 20170224
  Receipt Date: 20170224
  Transmission Date: 20170428
  Serious: No
  Sender: FDA-Public Use
  Company Number: US-BEH-2017078314

PATIENT
  Sex: Female
  Weight: 45.35 kg

DRUGS (12)
  1. DIPHENHYDRAMINE. [Concomitant]
     Active Substance: DIPHENHYDRAMINE
  2. HIZENTRA [Suspect]
     Active Substance: HUMAN IMMUNOGLOBULIN G
     Indication: IMMUNODEFICIENCY COMMON VARIABLE
     Dosage: 10 G, QW
     Route: 058
     Dates: start: 20150729
  3. EPIPEN [Concomitant]
     Active Substance: EPINEPHRINE
  4. CEFTRIAXONE. [Concomitant]
     Active Substance: CEFTRIAXONE
  5. ACEBUTOLOL [Concomitant]
     Active Substance: ACEBUTOLOL
  6. XANAX [Concomitant]
     Active Substance: ALPRAZOLAM
  7. CREON [Concomitant]
     Active Substance: PANCRELIPASE AMYLASE\PANCRELIPASE LIPASE\PANCRELIPASE PROTEASE
  8. ACETAMINOPHEN. [Concomitant]
     Active Substance: ACETAMINOPHEN
  9. METHOTREXATE. [Concomitant]
     Active Substance: METHOTREXATE
  10. MAGNESIUM [Concomitant]
     Active Substance: MAGNESIUM
  11. KEPPRA [Concomitant]
     Active Substance: LEVETIRACETAM
  12. LEVALBUTEROL. [Concomitant]
     Active Substance: LEVALBUTEROL

REACTIONS (1)
  - Aortic calcification [Unknown]
